FAERS Safety Report 13031692 (Version 1)
Quarter: 2016Q4

REPORT INFORMATION
  Report Type: Spontaneous
  Country: US (occurrence: US)
  Receive Date: 20161215
  Receipt Date: 20161215
  Transmission Date: 20170207
  Serious: Yes (Other)
  Sender: FDA-Public Use
  Company Number: US-BAYER-2016-231668

PATIENT
  Age: 79 Year
  Sex: Male

DRUGS (3)
  1. XOFIGO [Suspect]
     Active Substance: RADIUM RA-223 DICHLORIDE
     Indication: PROSTATE CANCER
     Dosage: UNK
     Route: 042
     Dates: start: 20161116, end: 20161116
  2. XOFIGO [Suspect]
     Active Substance: RADIUM RA-223 DICHLORIDE
     Indication: PROSTATE CANCER
     Dosage: UNK
     Route: 042
     Dates: start: 20161019, end: 20161019
  3. XOFIGO [Suspect]
     Active Substance: RADIUM RA-223 DICHLORIDE
     Indication: PROSTATE CANCER
     Dosage: UNK
     Route: 042
     Dates: start: 20160920, end: 20160920

REACTIONS (13)
  - Mobility decreased [None]
  - Spinal pain [None]
  - Presyncope [None]
  - Constipation [None]
  - Bedridden [Recovering/Resolving]
  - Body temperature increased [None]
  - Diarrhoea [None]
  - Dehydration [None]
  - Abdominal pain [Recovered/Resolved]
  - Malaise [None]
  - Back pain [None]
  - Fatigue [Recovering/Resolving]
  - Weight decreased [None]

NARRATIVE: CASE EVENT DATE: 2016
